FAERS Safety Report 10833455 (Version 4)
Quarter: 2015Q4

REPORT INFORMATION
  Report Type: Spontaneous
  Country: US (occurrence: US)
  Receive Date: 20150219
  Receipt Date: 20151102
  Transmission Date: 20160304
  Serious: No
  Sender: FDA-Public Use
  Company Number: US-009507513-1201USA01011

PATIENT
  Sex: Male

DRUGS (1)
  1. PROPECIA [Suspect]
     Active Substance: FINASTERIDE
     Indication: ALOPECIA
     Dosage: UNK UNK, QD
     Route: 048
     Dates: start: 201002, end: 201108

REACTIONS (4)
  - Loss of libido [Not Recovered/Not Resolved]
  - Sperm concentration decreased [Not Recovered/Not Resolved]
  - Erectile dysfunction [Unknown]
  - Sexual dysfunction [Not Recovered/Not Resolved]

NARRATIVE: CASE EVENT DATE: 201008
